FAERS Safety Report 16856147 (Version 1)
Quarter: 2019Q3

REPORT INFORMATION
  Report Type: Report from Study
  Country: ES (occurrence: ES)
  Receive Date: 20190926
  Receipt Date: 20190926
  Transmission Date: 20191005
  Serious: Yes (Hospitalization)
  Sender: FDA-Public Use
  Company Number: ES-TEVA-2019-ES-1111836

PATIENT
  Age: 77 Year
  Sex: Male

DRUGS (3)
  1. QUETIAPINA (1136A) [Suspect]
     Active Substance: QUETIAPINE
     Indication: MANIA
     Dosage: 0-0-1
     Route: 048
     Dates: start: 20170418
  2. DICLOFENACO (745A) [Suspect]
     Active Substance: DICLOFENAC
     Indication: BACK PAIN
     Dosage: 1-0-1
     Route: 048
     Dates: start: 20190305, end: 20190306
  3. ZOLPIDEM [Suspect]
     Active Substance: ZOLPIDEM TARTRATE
     Dosage: 0-0-1
     Route: 048
     Dates: start: 20171117, end: 20190306

REACTIONS (2)
  - Rhabdomyolysis [Recovered/Resolved]
  - Acute kidney injury [Recovered/Resolved]

NARRATIVE: CASE EVENT DATE: 20190306
